FAERS Safety Report 8499814-0 (Version None)
Quarter: 2012Q3

REPORT INFORMATION
  Report Type: 
  Country: None (occurrence: None)
  Receive Date: 20120710
  Receipt Date: 20120703
  Transmission Date: 20120928
  Serious: Yes (Other)
  Sender: FDA-Public Use
  Company Number: DE-SANOFI-AVENTIS-2012SA044174

PATIENT
  Sex: Female

DRUGS (1)
  1. LEFLUNOMIDE [Suspect]
     Route: 065

REACTIONS (5)
  - ANAEMIA [None]
  - BODY TEMPERATURE INCREASED [None]
  - ASTHENIA [None]
  - TRANSAMINASES INCREASED [None]
  - DIARRHOEA [None]
